FAERS Safety Report 5431523-4 (Version None)
Quarter: 2007Q3

REPORT INFORMATION
  Report Type: 
  Country: None (occurrence: None)
  Receive Date: 20070830
  Receipt Date: 20070824
  Transmission Date: 20080115
  Serious: Yes (Hospitalization, Other)
  Sender: FDA-Public Use
  Company Number: HQWYE707805MAY04

PATIENT
  Sex: Female
  Weight: 56.75 kg

DRUGS (2)
  1. PREMPRO [Suspect]
     Indication: MENOPAUSAL SYMPTOMS
     Dosage: UNKNOWN
     Route: 048
     Dates: start: 20000101, end: 20010101
  2. PREMARIN [Suspect]
     Indication: MENOPAUSAL SYMPTOMS
     Dosage: UNKNOWN
     Route: 048
     Dates: start: 20000101, end: 20010101

REACTIONS (1)
  - BREAST CANCER METASTATIC [None]
